FAERS Safety Report 5588215-0 (Version None)
Quarter: 2007Q4

REPORT INFORMATION
  Report Type: 
  Country: None (occurrence: None)
  Receive Date: 20071212
  Receipt Date: 20061028
  Transmission Date: 20080405
  Serious: Yes (Death)
  Sender: FDA-Public Use
  Company Number: USA-2006-0025517

PATIENT
  Sex: Female

DRUGS (2)
  1. OXYCONTIN [Suspect]
     Indication: PAIN
     Dosage: SEE TEXT, ORAL
     Route: 048
  2. BREAKTHROUGH PAIN MEDICATION [Suspect]
     Indication: PAIN
     Dosage: ORAL
     Route: 048

REACTIONS (1)
  - OVERDOSE [None]
